FAERS Safety Report 21701373 (Version 1)
Quarter: 2022Q4

REPORT INFORMATION
  Report Type: Report from Study
  Country: US (occurrence: US)
  Receive Date: 20221208
  Receipt Date: 20221208
  Transmission Date: 20230113
  Serious: Yes (Hospitalization, Other)
  Sender: FDA-Public Use
  Company Number: US-ABBVIE-4228364

PATIENT
  Sex: Female

DRUGS (1)
  1. HUMIRA [Suspect]
     Active Substance: ADALIMUMAB
     Indication: Colitis ulcerative
     Dosage: CF?FORM STRENGTH 40 MG
     Route: 058

REACTIONS (5)
  - Heart valve stenosis [Unknown]
  - Dyspnoea [Unknown]
  - Oedema [Unknown]
  - Therapeutic product effect decreased [Not Recovered/Not Resolved]
  - Chest pain [Not Recovered/Not Resolved]
